FAERS Safety Report 7598247 (Version 3)
Quarter: 2012Q4

REPORT INFORMATION
  Report Type: 
  Country: US (occurrence: US)
  Receive Date: 20100920
  Receipt Date: 20121001
  Transmission Date: 20130627
  Serious: No
  Sender: FDA-Public Use
  Company Number: US-ASTRAZENECA-2009SE17574

PATIENT
  Age: 30 Year
  Sex: Female
  Weight: 129.3 kg

DRUGS (15)
  1. SEROQUEL [Suspect]
     Indication: POST-TRAUMATIC STRESS DISORDER
     Route: 048
     Dates: start: 200603, end: 200701
  2. SEROQUEL [Suspect]
     Indication: POST-TRAUMATIC STRESS DISORDER
     Route: 048
     Dates: start: 200603, end: 200706
  3. SEROQUEL [Suspect]
     Indication: POST-TRAUMATIC STRESS DISORDER
     Route: 048
     Dates: start: 20060315
  4. SEROQUEL [Suspect]
     Indication: POST-TRAUMATIC STRESS DISORDER
     Route: 048
     Dates: start: 2007, end: 200709
  5. CELEXA [Concomitant]
     Dates: start: 2006
  6. CELEXA [Concomitant]
     Dates: start: 20060315
  7. AMITRIPTILINE [Concomitant]
     Indication: PAIN
     Dates: start: 2007
  8. CYMBALTA [Concomitant]
     Indication: PAIN
     Dates: start: 2007
  9. METHADONE [Concomitant]
     Indication: PAIN
     Route: 048
     Dates: start: 2007
  10. PERCOCET [Concomitant]
     Indication: PAIN
     Dosage: 7.5/325 325 MG - 7.5 MG 1 TABLET BY MOUTH EVERY 6 HOURS
     Route: 048
     Dates: start: 2007
  11. NAPROXEN/NAPROSYN [Concomitant]
     Indication: PAIN
     Route: 048
     Dates: start: 2007
  12. NAPROXEN/NAPROSYN [Concomitant]
     Indication: PAIN
     Dosage: 500 MG BID WITH FOOD PRN
     Dates: start: 20060315
  13. LORAZEPAM [Concomitant]
     Route: 048
     Dates: start: 2007
  14. FLEXERIL [Concomitant]
     Dosage: 10 MG PO QD PRN
     Route: 048
     Dates: start: 2007
  15. HCTZ [Concomitant]
     Dates: start: 20070511

REACTIONS (4)
  - Type 2 diabetes mellitus [Unknown]
  - Gestational diabetes [Unknown]
  - Diabetes mellitus inadequate control [Unknown]
  - Obesity [Unknown]
